FAERS Safety Report 9476590 (Version 1)
Quarter: 2013Q3

REPORT INFORMATION
  Report Type: Spontaneous
  Country: US (occurrence: US)
  Receive Date: 20130826
  Receipt Date: 20130826
  Transmission Date: 20140515
  Serious: No
  Sender: FDA-Public Use
  Company Number: US-BAYER-2013-099422

PATIENT
  Age: 55 Year
  Sex: Female
  Weight: 88.44 kg

DRUGS (2)
  1. CIPRO [Suspect]
     Indication: URINARY TRACT INFECTION
     Dosage: 750 MG, BID
     Dates: start: 2012, end: 2012
  2. ZITHROMAX [Suspect]
     Indication: BRONCHITIS
     Dosage: UNK
     Dates: start: 2012, end: 2012

REACTIONS (2)
  - Joint swelling [None]
  - Gait disturbance [None]
